FAERS Safety Report 5509977-4 (Version None)
Quarter: 2007Q4

REPORT INFORMATION
  Report Type: 
  Country: None (occurrence: None)
  Receive Date: 20071108
  Receipt Date: 20070115
  Transmission Date: 20080405
  Serious: No
  Sender: FDA-Public Use
  Company Number: US-ABBOTT-07P-163-0356468-00

PATIENT
  Sex: Female

DRUGS (1)
  1. BIAXIN [Suspect]
     Indication: INFECTION
     Dates: start: 20061114

REACTIONS (6)
  - ARTHRALGIA [None]
  - BLISTER [None]
  - JOINT SWELLING [None]
  - PYREXIA [None]
  - RASH [None]
  - RASH GENERALISED [None]
